FAERS Safety Report 9310221 (Version 1)
Quarter: 2013Q2

REPORT INFORMATION
  Report Type: Report from Study
  Country: NL (occurrence: NL)
  Receive Date: 20130527
  Receipt Date: 20130527
  Transmission Date: 20140414
  Serious: Yes (Other)
  Sender: FDA-Public Use
  Company Number: PHHY2013NL052437

PATIENT
  Sex: Male

DRUGS (4)
  1. ZOMETA [Suspect]
     Indication: PROSTATE CANCER METASTATIC
     Dosage: 4 MG, PER 100 ML; 1X PER 4 WEEKS
     Route: 041
  2. ZOMETA [Suspect]
     Dosage: 4 MG, PER 100 ML; 1X PER 4 WEEKS
     Route: 041
     Dates: start: 20120206
  3. ZOMETA [Suspect]
     Dosage: 4 MG, PER 100 ML; 1X PER 4 WEEKS
     Route: 041
     Dates: start: 20130408
  4. ZOMETA [Suspect]
     Dosage: 4 MG, PER 100 ML; 1X PER 4 WEEKS
     Route: 041
     Dates: start: 20130513

REACTIONS (3)
  - Terminal state [Unknown]
  - Prostate cancer metastatic [Unknown]
  - Malignant neoplasm progression [Unknown]
